FAERS Safety Report 7309498-2 (Version None)
Quarter: 2011Q1

REPORT INFORMATION
  Report Type: 
  Country: None (occurrence: None)
  Receive Date: 20110223
  Receipt Date: 20110127
  Transmission Date: 20110831
  Serious: No
  Sender: FDA-Public Use
  Company Number: US-B.I. PHARMACEUTICALS,INC./RIDGEFIELD-2011-BP-02983BP

PATIENT
  Age: 84 Year
  Sex: Female

DRUGS (4)
  1. COREG [Concomitant]
     Indication: HYPERTENSION
  2. SIMVASTATIN [Concomitant]
     Indication: BLOOD CHOLESTEROL INCREASED
  3. LISINOPRIL [Concomitant]
     Indication: HYPERTENSION
  4. PRADAXA [Suspect]
     Indication: ATRIAL FIBRILLATION
     Dosage: 150 MG
     Route: 048
     Dates: start: 20110116

REACTIONS (4)
  - DYSPEPSIA [None]
  - ABDOMINAL DISCOMFORT [None]
  - ANORECTAL DISORDER [None]
  - FREQUENT BOWEL MOVEMENTS [None]
